FAERS Safety Report 17125794 (Version 1)
Quarter: 2019Q4

REPORT INFORMATION
  Report Type: Spontaneous
  Country: CA (occurrence: CA)
  Receive Date: 20191208
  Receipt Date: 20191208
  Transmission Date: 20200122
  Serious: Yes (Other)
  Sender: FDA-Public Use
  Company Number: CA-CELLTRION INC.-2019CA026988

PATIENT

DRUGS (16)
  1. INFLIXIMAB PFIZER (UNKNOWN) [Suspect]
     Active Substance: INFLIXIMAB
     Route: 065
  2. PREDNISONE. [Suspect]
     Active Substance: PREDNISONE
     Dosage: 400 MG, EVERY 8 WEEKS
     Route: 048
  3. HYDROMORPHONE [Concomitant]
     Active Substance: HYDROMORPHONE
     Dosage: 2 MG, 1 EVERY 4 HOUR(S)
     Route: 048
  4. HUMIRA [Suspect]
     Active Substance: ADALIMUMAB
     Route: 058
  5. PREDNISONE. [Suspect]
     Active Substance: PREDNISONE
     Dosage: 40 MG, DAILY
     Route: 048
  6. PREDNISONE. [Suspect]
     Active Substance: PREDNISONE
     Dosage: 400 MG, EVERY 6 WEEKS
     Route: 048
  7. ENTOCORT [Concomitant]
     Active Substance: BUDESONIDE
     Dosage: 9 MG, DAILY
     Route: 048
  8. PREDNISONE. [Suspect]
     Active Substance: PREDNISONE
     Dosage: 400 MG, EVERY 2 WEEKS
     Route: 048
  9. DEMEROL [Concomitant]
     Active Substance: MEPERIDINE HYDROCHLORIDE
     Route: 065
  10. SULFASALAZINE. [Concomitant]
     Active Substance: SULFASALAZINE
     Dosage: 500 MG, 2X/DAY
     Route: 065
  11. ZOPICLONE [Concomitant]
     Active Substance: ZOPICLONE
     Dosage: 7.5 MG, AS NEEDED
     Route: 048
  12. PREDNISONE. [Suspect]
     Active Substance: PREDNISONE
     Dosage: 40 MG, DAILY
     Route: 048
  13. STELARA [Suspect]
     Active Substance: USTEKINUMAB
     Indication: CROHN^S DISEASE
     Dosage: 90 MG, 1 EVERY 4 WEEKS
     Route: 058
  14. PREDNISONE. [Suspect]
     Active Substance: PREDNISONE
     Dosage: 400 MG, EVERY 0 WEEK(S)
     Route: 048
  15. LEUCOVORIN CALCIUM. [Concomitant]
     Active Substance: LEUCOVORIN CALCIUM
     Dosage: 10 MG, UNK
     Route: 048
  16. METHOTREXATE. [Concomitant]
     Active Substance: METHOTREXATE
     Dosage: 25 MG, WEEKLY
     Route: 058

REACTIONS (4)
  - Drug ineffective [Unknown]
  - Off label use [Unknown]
  - Crohn^s disease [Unknown]
  - Product use issue [Unknown]
